FAERS Safety Report 8339879-X (Version None)
Quarter: 2012Q2

REPORT INFORMATION
  Report Type: 
  Country: None (occurrence: None)
  Receive Date: 20120507
  Receipt Date: 20120502
  Transmission Date: 20120825
  Serious: Yes (Other)
  Sender: FDA-Public Use
  Company Number: FR-PFIZER INC-2012073417

PATIENT
  Age: 57 Year
  Sex: Male
  Weight: 73 kg

DRUGS (5)
  1. LYRICA [Suspect]
     Indication: NEURALGIA
  2. TRAMADOL HCL [Concomitant]
     Indication: PAIN
     Dosage: 100 MG, 2X/DAY
     Route: 048
  3. CLONAZEPAM [Concomitant]
     Indication: PAIN
     Dosage: 15 DF, 1X/DAY
     Route: 048
     Dates: start: 20100701
  4. LYRICA [Suspect]
     Indication: BACK PAIN
     Dosage: 300 MG, 2X/DAY
     Route: 048
     Dates: start: 20100701, end: 20120301
  5. ACETAMINOPHEN [Concomitant]
     Indication: PAIN
     Dosage: 1 G, 3X/DAY
     Route: 048

REACTIONS (2)
  - VISUAL FIELD DEFECT [None]
  - NARROW ANTERIOR CHAMBER ANGLE [None]
